FAERS Safety Report 6811162-0 (Version None)
Quarter: 2010Q2

REPORT INFORMATION
  Report Type: 
  Country: None (occurrence: None)
  Receive Date: 20100630
  Receipt Date: 20090728
  Transmission Date: 20101027
  Serious: No
  Sender: FDA-Public Use
  Company Number: US-AMGEN-KDL358202

PATIENT
  Sex: Female
  Weight: 54.5 kg

DRUGS (3)
  1. PROCRIT [Suspect]
     Indication: RENAL FAILURE CHRONIC
     Route: 058
     Dates: start: 20060101
  2. IMURAN [Concomitant]
     Dates: start: 19970101
  3. CYCLOSPORINE [Concomitant]
     Dates: start: 19970101

REACTIONS (3)
  - FATIGUE [None]
  - HAEMOGLOBIN DECREASED [None]
  - LETHARGY [None]
